FAERS Safety Report 9721650 (Version 2)
Quarter: 2013Q4

REPORT INFORMATION
  Report Type: Spontaneous
  Country: US (occurrence: US)
  Receive Date: 20131201
  Receipt Date: 20131201
  Transmission Date: 20140711
  Serious: No
  Sender: FDA-Public Use
  Company Number: US-ABBVIE-13P-163-1147320-00

PATIENT
  Age: 81 Year
  Sex: Male
  Weight: 84.9 kg

DRUGS (2)
  1. ANDROGEL [Suspect]
     Indication: BLOOD TESTOSTERONE DECREASED
     Dosage: TWO PUMPS DAILY
     Route: 061
     Dates: start: 20130906
  2. UNKNOWN BETA BLOCKER [Concomitant]
     Indication: PRODUCT USED FOR UNKNOWN INDICATION

REACTIONS (1)
  - Gynaecomastia [Not Recovered/Not Resolved]
